FAERS Safety Report 8311536-5 (Version None)
Quarter: 2012Q2

REPORT INFORMATION
  Report Type: 
  Country: None (occurrence: None)
  Receive Date: 20120425
  Receipt Date: 20120417
  Transmission Date: 20120825
  Serious: Yes (Other)
  Sender: FDA-Public Use
  Company Number: DE-JNJFOC-20120408784

PATIENT

DRUGS (5)
  1. IFOSFAMIDE [Suspect]
     Indication: SARCOMA
     Route: 042
  2. DOXORUBICIN HCL [Suspect]
     Indication: SARCOMA
     Route: 042
  3. PEGFILGRASTIM [Suspect]
     Indication: SARCOMA
     Route: 058
  4. RADIATION THERAPY NOS [Suspect]
     Indication: SARCOMA
     Route: 065
  5. ETOPOSIDE [Suspect]
     Indication: SARCOMA
     Route: 042

REACTIONS (3)
  - FEBRILE NEUTROPENIA [None]
  - CARDIOTOXICITY [None]
  - NEUROTOXICITY [None]
